FAERS Safety Report 5511290-6 (Version None)
Quarter: 2007Q4

REPORT INFORMATION
  Report Type: 
  Country: None (occurrence: None)
  Receive Date: 20071109
  Receipt Date: 20070725
  Transmission Date: 20080405
  Serious: No
  Sender: FDA-Public Use
  Company Number: A0666611A

PATIENT
  Age: 40 Year
  Sex: Female

DRUGS (1)
  1. ALTABAX [Suspect]
     Route: 065
     Dates: start: 20070717, end: 20070720

REACTIONS (1)
  - DERMATITIS CONTACT [None]
